FAERS Safety Report 9661242 (Version 2)
Quarter: 2013Q4

REPORT INFORMATION
  Report Type: Spontaneous
  Country: BR (occurrence: BR)
  Receive Date: 20131031
  Receipt Date: 20131031
  Transmission Date: 20140711
  Serious: Yes (Hospitalization, Other)
  Sender: FDA-Public Use
  Company Number: BR-SA-FABR-1002483

PATIENT
  Age: 44 Year
  Sex: Male
  Weight: 90 kg

DRUGS (3)
  1. FABRAZYME [Suspect]
     Indication: FABRY^S DISEASE
     Dosage: 1 MG/KG, Q2W
     Route: 042
     Dates: start: 2006
  2. CORTICOSTEROIDS [Concomitant]
     Indication: PAIN
  3. DEXAMETHASONE [Concomitant]

REACTIONS (11)
  - Cardiomyopathy [Recovered/Resolved with Sequelae]
  - Renal impairment [Recovered/Resolved]
  - Cardiac failure [Recovered/Resolved with Sequelae]
  - Adrenocortical insufficiency acute [Recovered/Resolved]
  - Furuncle [Recovered/Resolved]
  - Atrial fibrillation [Not Recovered/Not Resolved]
  - Cardiac hypertrophy [Unknown]
  - Systolic dysfunction [Unknown]
  - Ventricular hypertrophy [Unknown]
  - Left atrial hypertrophy [Unknown]
  - Pyrexia [Recovered/Resolved]
